FAERS Safety Report 4897543-3 (Version None)
Quarter: 2006Q1

REPORT INFORMATION
  Report Type: 
  Country: None (occurrence: None)
  Receive Date: 20060130
  Receipt Date: 20060130
  Transmission Date: 20060701
  Serious: Yes (Hospitalization)
  Sender: FDA-Public Use
  Company Number: None

PATIENT
  Sex: Male
  Weight: 104 kg

DRUGS (1)
  1. HEPARIN 25000/D5W 250ML [Suspect]
     Indication: DEEP VEIN THROMBOSIS
     Dosage: ADJ PER PTT CONTINUOUS IV
     Route: 042
     Dates: start: 20051029, end: 20051110

REACTIONS (3)
  - HEPARIN-INDUCED THROMBOCYTOPENIA [None]
  - NEPHROLITHIASIS [None]
  - REFUSAL OF TREATMENT BY PATIENT [None]
